FAERS Safety Report 23669730 (Version 1)
Quarter: 2024Q1

REPORT INFORMATION
  Report Type: Spontaneous
  Country: CN (occurrence: CN)
  Receive Date: 20240325
  Receipt Date: 20240325
  Transmission Date: 20240409
  Serious: Yes (Other)
  Sender: FDA-Public Use
  Company Number: CN-009507513-2403CHN006482

PATIENT
  Age: 67 Year
  Sex: Male
  Weight: 44.5 kg

DRUGS (2)
  1. INVANZ [Suspect]
     Active Substance: ERTAPENEM SODIUM
     Indication: Urinary tract infection
     Dosage: 1 GRAM, ONCE A DAY (QD)
     Route: 041
     Dates: start: 20240117, end: 20240122
  2. SODIUM CHLORIDE [Concomitant]
     Indication: Medication dilution
     Dosage: 100 MILLILITER, ONCE A DAY (QD)
     Route: 041
     Dates: start: 20240117, end: 20240122

REACTIONS (9)
  - Cognitive disorder [Recovering/Resolving]
  - Syncope [Unknown]
  - Dyspnoea [Unknown]
  - Breath sounds abnormal [Unknown]
  - PCO2 decreased [Unknown]
  - Base excess decreased [Unknown]
  - Blood bicarbonate decreased [Unknown]
  - Unresponsive to stimuli [Unknown]
  - Mental status changes [Unknown]

NARRATIVE: CASE EVENT DATE: 20240122
